FAERS Safety Report 15147178 (Version 4)
Quarter: 2018Q4

REPORT INFORMATION
  Report Type: Report from Study
  Country: None (occurrence: US)
  Receive Date: 20180716
  Receipt Date: 20181120
  Transmission Date: 20190204
  Serious: Yes (Hospitalization, Other)
  Sender: FDA-Public Use
  Company Number: US-ABBVIE-18K-163-2398236-00

PATIENT
  Age: 73 Year
  Sex: Male

DRUGS (4)
  1. HUMIRA [Suspect]
     Active Substance: ADALIMUMAB
     Indication: COLITIS ULCERATIVE
     Dosage: DAY 1
     Route: 058
     Dates: start: 20180510, end: 20180510
  2. HUMIRA [Suspect]
     Active Substance: ADALIMUMAB
     Route: 058
     Dates: start: 201806
  3. HUMIRA [Suspect]
     Active Substance: ADALIMUMAB
     Dosage: DAY 15
     Route: 058
     Dates: start: 20180525, end: 20180525
  4. PREDNISONE. [Suspect]
     Active Substance: PREDNISONE
     Indication: PRODUCT USED FOR UNKNOWN INDICATION
     Route: 065

REACTIONS (19)
  - Polyp [Unknown]
  - Speech disorder [Recovered/Resolved]
  - Diarrhoea [Recovering/Resolving]
  - Defaecation urgency [Not Recovered/Not Resolved]
  - Post procedural haemorrhage [Unknown]
  - Inappropriate schedule of product administration [Unknown]
  - Head injury [Unknown]
  - Transient ischaemic attack [Unknown]
  - Skin discolouration [Unknown]
  - Blood magnesium decreased [Unknown]
  - Anal incontinence [Unknown]
  - Pain [Recovered/Resolved]
  - Drug effect incomplete [Unknown]
  - Hyperhidrosis [Unknown]
  - Surgical failure [Unknown]
  - Faeces discoloured [Unknown]
  - Fall [Unknown]
  - Aphasia [Unknown]
  - Weight increased [Unknown]

NARRATIVE: CASE EVENT DATE: 2018
